FAERS Safety Report 14802790 (Version 2)
Quarter: 2018Q2

REPORT INFORMATION
  Report Type: Spontaneous
  Country: SE (occurrence: SE)
  Receive Date: 20180424
  Receipt Date: 20180619
  Transmission Date: 20180711
  Serious: Yes (Hospitalization)
  Sender: FDA-Public Use
  Company Number: SE-PFIZER INC-2018088606

PATIENT
  Age: 51 Year
  Sex: Female

DRUGS (1)
  1. DALACIN [Suspect]
     Active Substance: CLINDAMYCIN
     Indication: ERYSIPELAS
     Dosage: 300 MG, 3X/DAY

REACTIONS (19)
  - Rash [Not Recovered/Not Resolved]
  - Fatigue [Not Recovered/Not Resolved]
  - Pharyngeal oedema [Not Recovered/Not Resolved]
  - Feeling abnormal [Not Recovered/Not Resolved]
  - Vaginal discharge [Unknown]
  - Osteitis [Unknown]
  - Pharyngeal paraesthesia [Recovered/Resolved]
  - Hypopnoea [Not Recovered/Not Resolved]
  - Abdominal pain lower [Unknown]
  - Abdominal distension [Not Recovered/Not Resolved]
  - Hypoaesthesia [Recovered/Resolved]
  - Erythema [Not Recovered/Not Resolved]
  - Sinusitis [Unknown]
  - Abdominal pain upper [Not Recovered/Not Resolved]
  - Dyspnoea [Not Recovered/Not Resolved]
  - Dysphagia [Not Recovered/Not Resolved]
  - Oropharyngeal spasm [Not Recovered/Not Resolved]
  - Drug ineffective [Not Recovered/Not Resolved]
  - Paraesthesia [Recovered/Resolved]
